FAERS Safety Report 4417857-0 (Version None)
Quarter: 2004Q3

REPORT INFORMATION
  Report Type: 
  Country: None (occurrence: None)
  Receive Date: 20040807
  Receipt Date: 20040507
  Transmission Date: 20050211
  Serious: Yes (Other)
  Sender: FDA-Public Use
  Company Number: US-MERCK-0405USA00683

PATIENT

DRUGS (3)
  1. AMPHOTERICIN B [Concomitant]
     Indication: BACTERIA BLOOD IDENTIFIED
     Route: 065
  2. CANCIDAS [Suspect]
     Indication: BACTERIA BLOOD IDENTIFIED
     Route: 042
  3. CANCIDAS [Suspect]
     Route: 042

REACTIONS (3)
  - CERVICAL CORD COMPRESSION [None]
  - OSTEOMYELITIS [None]
  - THERAPY NON-RESPONDER [None]
